FAERS Safety Report 22080802 (Version 1)
Quarter: 2023Q1

REPORT INFORMATION
  Report Type: Spontaneous
  Country: US (occurrence: US)
  Receive Date: 20230309
  Receipt Date: 20230309
  Transmission Date: 20230418
  Serious: No
  Sender: FDA-Public Use
  Company Number: US-MYOVANT SCIENCES GMBH-2022MYSCI1200536

PATIENT
  Age: 70 Year
  Sex: Male

DRUGS (4)
  1. ORGOVYX [Suspect]
     Active Substance: RELUGOLIX
     Indication: Prostate cancer
     Dosage: 120 MILLIGRAM, QD
     Route: 048
  2. ORGOVYX [Suspect]
     Active Substance: RELUGOLIX
     Dosage: 360 MILLIGRAM, ONE TIME DOSE
     Route: 048
     Dates: start: 20220926, end: 20220926
  3. ORGOVYX [Suspect]
     Active Substance: RELUGOLIX
     Dosage: 120 MILLIGRAM, QD
     Route: 048
     Dates: start: 20220927
  4. MIRTAZAPINE [Concomitant]
     Active Substance: MIRTAZAPINE
     Indication: Anxiety
     Dosage: UNK
     Route: 065

REACTIONS (8)
  - Muscular weakness [Not Recovered/Not Resolved]
  - Hypoaesthesia [Unknown]
  - Myalgia [Unknown]
  - Fatigue [Unknown]
  - Blood thyroid stimulating hormone increased [Not Recovered/Not Resolved]
  - Therapy interrupted [Recovered/Resolved]
  - Inappropriate schedule of product administration [Recovered/Resolved]
  - Product distribution issue [Recovered/Resolved]

NARRATIVE: CASE EVENT DATE: 20221201
